FAERS Safety Report 4885568-3 (Version None)
Quarter: 2006Q1

REPORT INFORMATION
  Report Type: 
  Country: None (occurrence: None)
  Receive Date: 20060119
  Receipt Date: 20051207
  Transmission Date: 20060701
  Serious: Yes (Hospitalization, Other)
  Sender: FDA-Public Use
  Company Number: US-MERCK-0512USA01032

PATIENT
  Age: 57 Year
  Sex: Male
  Weight: 82 kg

DRUGS (13)
  1. VIOXX [Suspect]
     Indication: RHEUMATOID ARTHRITIS
     Route: 048
     Dates: start: 19991129, end: 20001027
  2. PLAVIX [Concomitant]
     Route: 065
  3. ULTRAM [Concomitant]
     Route: 065
     Dates: start: 20000401
  4. ECOTRIN [Concomitant]
     Route: 065
  5. SPORANOX [Concomitant]
     Route: 065
  6. DELTASONE [Concomitant]
     Route: 065
  7. AMOXIL [Concomitant]
     Route: 065
  8. HYDROXYCHLOROQUINE SULFATE [Concomitant]
     Route: 065
  9. CEPHALEXIN [Concomitant]
     Route: 065
  10. CLOBETASOL PROPIONATE [Concomitant]
     Route: 065
  11. HYDROXYZINE HYDROCHLORIDE [Concomitant]
     Route: 065
  12. LODINE XL [Concomitant]
     Route: 065
  13. VIOXX [Suspect]
     Indication: OSTEOMYELITIS
     Route: 048
     Dates: start: 19991129, end: 20001027

REACTIONS (4)
  - CARDIOVASCULAR DISORDER [None]
  - HYPERTENSION [None]
  - MYOCARDIAL INFARCTION [None]
  - RHEUMATOID ARTHRITIS [None]
